FAERS Safety Report 8599399 (Version 3)
Quarter: 2013Q1

REPORT INFORMATION
  Report Type: Spontaneous
  Country: US (occurrence: US)
  Receive Date: 20120605
  Receipt Date: 20130201
  Transmission Date: 20140127
  Serious: Yes (Hospitalization)
  Sender: FDA-Public Use
  Company Number: US-ELI_LILLY_AND_COMPANY-US201205001600

PATIENT
  Sex: Female
  Weight: 56.69 kg

DRUGS (1)
  1. FORTEO [Suspect]
     Indication: OSTEOPOROSIS
     Dosage: 20 UG, UNK
     Route: 065

REACTIONS (3)
  - Accident [Unknown]
  - Underdose [Unknown]
  - Inappropriate schedule of drug administration [Unknown]
